FAERS Safety Report 16355454 (Version 2)
Quarter: 2019Q2

REPORT INFORMATION
  Report Type: Spontaneous
  Country: US (occurrence: US)
  Receive Date: 20190525
  Receipt Date: 20190619
  Transmission Date: 20190711
  Serious: No
  Sender: FDA-Public Use
  Company Number: US-009507513-1905USA007158

PATIENT
  Age: 23 Year
  Sex: Female
  Weight: 81.18 kg

DRUGS (2)
  1. NEXPLANON [Suspect]
     Active Substance: ETONOGESTREL
     Dosage: 1 ROD PER 3 YEARS
     Route: 059
     Dates: start: 20190513
  2. NEXPLANON [Suspect]
     Active Substance: ETONOGESTREL
     Indication: CONTRACEPTION
     Dosage: 1 ROD PER 3 YEARS
     Route: 059
     Dates: start: 20190513, end: 20190513

REACTIONS (7)
  - Device deployment issue [Recovered/Resolved]
  - Implant site bruising [Recovered/Resolved]
  - Implant site erythema [Recovered/Resolved]
  - Device expulsion [Recovered/Resolved]
  - Implant site irritation [Recovered/Resolved]
  - Product quality issue [Unknown]
  - Implant site pain [Recovered/Resolved]

NARRATIVE: CASE EVENT DATE: 20190513
